FAERS Safety Report 5024176-0 (Version None)
Quarter: 2006Q2

REPORT INFORMATION
  Report Type: 
  Country: None (occurrence: None)
  Receive Date: 20060607
  Receipt Date: 20060603
  Transmission Date: 20061013
  Serious: Yes (Hospitalization)
  Sender: FDA-Public Use
  Company Number: 221329

PATIENT
  Age: 26 Year
  Sex: Male

DRUGS (2)
  1. RAPTIVA [Suspect]
     Indication: PSORIASIS
     Dosage: SEE IMAGE
     Route: 058
     Dates: end: 20060102
  2. RAPTIVA [Suspect]
     Indication: PSORIASIS
     Dosage: SEE IMAGE
     Route: 058
     Dates: start: 20051123

REACTIONS (7)
  - CONDITION AGGRAVATED [None]
  - CONJUNCTIVITIS [None]
  - DERMATITIS EXFOLIATIVE [None]
  - LEUKOCYTOSIS [None]
  - NASOPHARYNGITIS [None]
  - PRURITUS [None]
  - PSORIASIS [None]
